FAERS Safety Report 22288385 (Version 1)
Quarter: 2023Q2

REPORT INFORMATION
  Report Type: Other
  Country: GB (occurrence: GB)
  Receive Date: 20230505
  Receipt Date: 20230505
  Transmission Date: 20230721
  Serious: Yes (Other)
  Sender: FDA-Public Use
  Company Number: GB-GLENMARK PHARMACEUTICALS-2023GMK081564

PATIENT

DRUGS (5)
  1. MONTELUKAST SODIUM [Suspect]
     Active Substance: MONTELUKAST SODIUM
     Indication: Asthma
     Dosage: 4 MILLIGRAM, HS
     Route: 065
     Dates: start: 20230324
  2. BECLOMETHASONE DIPROPIONATE [Concomitant]
     Active Substance: BECLOMETHASONE DIPROPIONATE
     Indication: Product used for unknown indication
     Dosage: UNK (50-100 MICROGRAMS)
     Route: 065
  3. HYDROMOL [EMULSIFYING WAX;PARAFFIN SOFT] [Concomitant]
     Indication: Wheezing
     Dosage: 500 GRAM (APPLY TO SKIN OR USE AS A SOAP SUBSTITUTE)
     Route: 065
     Dates: start: 20230322
  4. PREDNISOLONE [Concomitant]
     Active Substance: PREDNISOLONE
     Indication: Wheezing
     Dosage: 20 MILLIGRAM (4 AS STAT DOSE)
     Route: 065
     Dates: start: 20230322
  5. ALBUTEROL [Concomitant]
     Active Substance: ALBUTEROL
     Indication: Product used for unknown indication
     Dosage: 2 DOSAGE FORM, PRN
     Route: 055

REACTIONS (3)
  - Speech disorder [Unknown]
  - Slow speech [Unknown]
  - Irritability [Unknown]
